FAERS Safety Report 4736188-2 (Version None)
Quarter: 2005Q3

REPORT INFORMATION
  Report Type: 
  Country: None (occurrence: None)
  Receive Date: 20050806
  Receipt Date: 20050727
  Transmission Date: 20060218
  Serious: Yes (Other)
  Sender: FDA-Public Use
  Company Number: PHEH2005US08319

PATIENT
  Age: 41 Year
  Sex: Female
  Weight: 63 kg

DRUGS (2)
  1. ZELNORM [Suspect]
     Indication: IRRITABLE BOWEL SYNDROME
     Dosage: 6 MG, BID
     Route: 048
     Dates: start: 20050622, end: 20050720
  2. MIRALAX [Concomitant]

REACTIONS (13)
  - ASTHENIA [None]
  - BALANCE DISORDER [None]
  - BLINDNESS TRANSIENT [None]
  - BLOOD PRESSURE SYSTOLIC INCREASED [None]
  - CONFUSIONAL STATE [None]
  - DEPRESSED LEVEL OF CONSCIOUSNESS [None]
  - DISTURBANCE IN ATTENTION [None]
  - DIZZINESS [None]
  - HEADACHE [None]
  - HEARING IMPAIRED [None]
  - OEDEMA PERIPHERAL [None]
  - PALLOR [None]
  - SINUS BRADYCARDIA [None]
